FAERS Safety Report 17884921 (Version 1)
Quarter: 2020Q2

REPORT INFORMATION
  Report Type: Report from Study
  Country: IQ (occurrence: IQ)
  Receive Date: 20200611
  Receipt Date: 20200611
  Transmission Date: 20200714
  Serious: Yes (Other)
  Sender: FDA-Public Use
  Company Number: IQ-ROCHE-2616942

PATIENT

DRUGS (3)
  1. RITUXIMAB. [Suspect]
     Active Substance: RITUXIMAB
     Indication: RHEUMATOID ARTHRITIS
     Dosage: (2 VIALS 500MG) IV INFUSION FOR 2 CYCLES (6 MONTHS APART), EACH CYCLE HAS 2 DOSES (2 WEEKS APART)
     Route: 042
  2. METHYLPREDNISOLONE. [Concomitant]
     Active Substance: METHYLPREDNISOLONE
     Route: 042
  3. PARACETAMOL [Concomitant]
     Active Substance: ACETAMINOPHEN
     Route: 065

REACTIONS (4)
  - Nasopharyngitis [Unknown]
  - Transfusion reaction [Recovering/Resolving]
  - Lower respiratory tract infection [Unknown]
  - Pruritus [Unknown]
